FAERS Safety Report 24816552 (Version 1)
Quarter: 2025Q1

REPORT INFORMATION
  Report Type: Spontaneous
  Country: US (occurrence: US)
  Receive Date: 20250107
  Receipt Date: 20250107
  Transmission Date: 20250408
  Serious: No
  Sender: MADRIGAL PHARMACEUTICALS
  Company Number: US-MADRIGAL PHARMACEUTICALS, INC-2024REZ3215

PATIENT

DRUGS (7)
  1. REZDIFFRA [Suspect]
     Active Substance: RESMETIROM
     Indication: Hepatic steatosis
     Dosage: 80 MILLIGRAM, QD
     Route: 048
     Dates: start: 20240926, end: 20241018
  2. REZDIFFRA [Suspect]
     Active Substance: RESMETIROM
     Indication: Hepatic fibrosis
  3. OMEPRAZOLE [Concomitant]
     Active Substance: OMEPRAZOLE
     Dosage: 40 MILLIGRAM, QD
     Route: 048
  4. AMITRIPTYLINE [Concomitant]
     Active Substance: AMITRIPTYLINE
     Dosage: 100 MILLIGRAM, QD
     Route: 048
  5. Neurotin [Concomitant]
     Dosage: 600 MILLIGRAM, BID
     Route: 048
  6. TRAMADOL [Concomitant]
     Active Substance: TRAMADOL
     Route: 048
  7. FLEXERIL [Concomitant]
     Active Substance: CYCLOBENZAPRINE HYDROCHLORIDE
     Route: 048

REACTIONS (3)
  - Nausea [Recovered/Resolved]
  - Constipation [Recovered/Resolved]
  - Abdominal pain upper [Unknown]

NARRATIVE: CASE EVENT DATE: 20240101
